FAERS Safety Report 6288480-0 (Version None)
Quarter: 2009Q3

REPORT INFORMATION
  Report Type: 
  Country: None (occurrence: None)
  Receive Date: 20090729
  Receipt Date: 20090720
  Transmission Date: 20100115
  Serious: Yes (Hospitalization)
  Sender: FDA-Public Use
  Company Number: JP-ASTRAZENECA-2009SE05727

PATIENT
  Age: 70 Year
  Sex: Female

DRUGS (1)
  1. BLOPRESS PLUS [Suspect]
     Indication: DRUG USE FOR UNKNOWN INDICATION
     Dosage: 32MG CANDESARTAN CILEXETIL, 25MG HCT TWICE DAILY
     Route: 048

REACTIONS (4)
  - BLOOD SODIUM DECREASED [None]
  - MEDICATION ERROR [None]
  - POLYURIA [None]
  - VERTIGO [None]
